FAERS Safety Report 4525466-8 (Version None)
Quarter: 2004Q4

REPORT INFORMATION
  Report Type: 
  Country: None (occurrence: None)
  Receive Date: 20041108
  Receipt Date: 20030731
  Transmission Date: 20050328
  Serious: Yes (Other)
  Sender: FDA-Public Use
  Company Number: US-JNJFOC-20040608281

PATIENT
  Age: 2 Year
  Sex: Female
  Weight: 12.2471 kg

DRUGS (1)
  1. ACETAMINOPHEN [Suspect]
     Indication: ACCIDENTAL EXPOSURE
     Dosage: 1200 MG, 1 IN 1 TOTAL, ORAL
     Route: 048
     Dates: start: 20030731, end: 20030731

REACTIONS (1)
  - ACCIDENTAL OVERDOSE [None]
